FAERS Safety Report 7868317-6 (Version None)
Quarter: 2011Q4

REPORT INFORMATION
  Report Type: 
  Country: None (occurrence: None)
  Receive Date: 20111028
  Receipt Date: 20101213
  Transmission Date: 20120403
  Serious: No
  Sender: FDA-Public Use
  Company Number: US-AMGEN-USASP2010009316

PATIENT
  Sex: Female

DRUGS (1)
  1. ENBREL [Suspect]
     Indication: RHEUMATOID ARTHRITIS
     Dosage: 25 MG, 2 TIMES/WK
     Dates: start: 20010501

REACTIONS (6)
  - NAIL DISCOLOURATION [None]
  - DYSPHONIA [None]
  - TINEA PEDIS [None]
  - NAIL OPERATION [None]
  - MUSCULOSKELETAL DISORDER [None]
  - CELLULITIS [None]
